FAERS Safety Report 17736813 (Version 3)
Quarter: 2021Q1

REPORT INFORMATION
  Report Type: Report from Study
  Country: US (occurrence: US)
  Receive Date: 20200502
  Receipt Date: 20210202
  Transmission Date: 20210419
  Serious: Yes (Hospitalization)
  Sender: FDA-Public Use
  Company Number: NVSC2020US118565

PATIENT
  Age: 63 Year
  Sex: Male

DRUGS (3)
  1. ENTRESTO [Suspect]
     Active Substance: SACUBITRIL\VALSARTAN
     Indication: ATRIOVENTRICULAR BLOCK
  2. ELIQUIS [Concomitant]
     Active Substance: APIXABAN
     Indication: PRODUCT USED FOR UNKNOWN INDICATION
     Dosage: UNK
     Route: 065
  3. ENTRESTO [Suspect]
     Active Substance: SACUBITRIL\VALSARTAN
     Indication: EJECTION FRACTION DECREASED
     Dosage: UNK UNK, BID
     Route: 048

REACTIONS (5)
  - Lung neoplasm malignant [Unknown]
  - Dyspnoea [Unknown]
  - Product dose omission issue [Unknown]
  - Atrial fibrillation [Not Recovered/Not Resolved]
  - Atrioventricular block [Unknown]
